FAERS Safety Report 7265835-9 (Version None)
Quarter: 2011Q1

REPORT INFORMATION
  Report Type: 
  Country: None (occurrence: None)
  Receive Date: 20110131
  Receipt Date: 20110127
  Transmission Date: 20110831
  Serious: Yes (Other)
  Sender: FDA-Public Use
  Company Number: A0905526A

PATIENT
  Age: 45 Year
  Sex: Male
  Weight: 63 kg

DRUGS (8)
  1. COUMADIN [Concomitant]
     Dosage: 2MG UNKNOWN
     Route: 048
  2. OXYCODONE HCL AND ACETAMINOPHEN [Concomitant]
     Route: 048
  3. FLOLAN [Suspect]
     Indication: PULMONARY ARTERIAL HYPERTENSION
     Dosage: 22NGKM UNKNOWN
     Route: 042
     Dates: start: 20041005
  4. CENTRUM [Concomitant]
     Route: 048
  5. ENSURE [Concomitant]
     Route: 048
  6. OXYGEN [Concomitant]
  7. FLOLAN [Suspect]
     Route: 042
  8. MEGESTROL ACETATE [Concomitant]
     Dosage: 40MGML UNKNOWN

REACTIONS (1)
  - NIGHTMARE [None]
